FAERS Safety Report 6281891 (Version 14)
Quarter: 2013Q4

REPORT INFORMATION
  Report Type: Spontaneous
  Country: US (occurrence: US)
  Receive Date: 20070406
  Receipt Date: 20131018
  Transmission Date: 20140711
  Serious: Yes (Death, Hospitalization, Other)
  Sender: FDA-Public Use
  Company Number: PHEH2005US07148

PATIENT
  Age: 50 Year
  Sex: Female
  Weight: 74.83 kg

DRUGS (41)
  1. AREDIA [Suspect]
     Dosage: 30 MG
     Dates: start: 20010316, end: 2004
  2. ZOMETA [Suspect]
     Indication: BREAST CANCER METASTATIC
     Dosage: 4 MG
     Dates: start: 2004, end: 20050623
  3. XELODA [Concomitant]
     Dosage: 3500 MG,
     Route: 048
     Dates: end: 200503
  4. GEMZAR [Concomitant]
     Dosage: 1700 MG
     Dates: start: 200503
  5. ZOLADEX [Concomitant]
     Indication: BREAST CANCER
     Route: 058
     Dates: start: 200503
  6. DECADRON [Concomitant]
     Dosage: 5 MG
  7. SYNTHROID [Concomitant]
  8. PROCRIT [Concomitant]
  9. ADVIL [Concomitant]
  10. NEXIUM [Concomitant]
     Dosage: 20 MG,
  11. TAXOL [Concomitant]
     Dates: start: 2001
  12. TAXOL [Concomitant]
     Dates: start: 2004
  13. FASLODEX [Concomitant]
  14. ATIVAN [Concomitant]
  15. HYDROCHLOROTHIAZIDE [Concomitant]
  16. ARIMIDEX ^ASTRAZENECA^ [Concomitant]
  17. PROZAC [Concomitant]
  18. ZOLOFT (SERTRALINE HYDROCHLORIDE) [Concomitant]
  19. OMEPRAZOLE [Concomitant]
  20. CELEBREX [Concomitant]
  21. ACYCLOVIR [Concomitant]
  22. FAMVIR                                  /UNK/ [Concomitant]
  23. METHYLPREDNISOLONE [Concomitant]
  24. OXYCODONE/APAP [Concomitant]
  25. TYLOX [Concomitant]
  26. METHOCARBAMOL [Concomitant]
  27. NABUMETONE [Concomitant]
  28. KEFLEX                                  /UNK/ [Concomitant]
  29. ANCEF [Concomitant]
  30. CEREBYX [Concomitant]
  31. SKELAXIN [Concomitant]
  32. LORTAB [Concomitant]
  33. LEVOTHYROXINE [Concomitant]
  34. CEFAZOLIN [Concomitant]
  35. CIPROFLOXACIN [Concomitant]
  36. AMOXICILLIN [Concomitant]
  37. CELEXA [Concomitant]
  38. LASIX [Concomitant]
  39. LEXAPRO [Concomitant]
     Dosage: 10 MG,
  40. ALOXI [Concomitant]
     Dosage: 0.25 MG,
  41. COUMADIN ^BOOTS^ [Concomitant]

REACTIONS (112)
  - Thrombotic thrombocytopenic purpura [Fatal]
  - Osteonecrosis of jaw [Unknown]
  - Infection [Not Recovered/Not Resolved]
  - Gingival pain [Unknown]
  - Impaired healing [Unknown]
  - Pain [Unknown]
  - Hypophagia [Unknown]
  - Bone pain [Unknown]
  - Swelling [Unknown]
  - Mouth ulceration [Unknown]
  - Ear pain [Unknown]
  - Bone disorder [Unknown]
  - Hypoaesthesia oral [Recovered/Resolved]
  - Bone formation increased [Unknown]
  - Deformity [Unknown]
  - Emotional distress [Unknown]
  - Anxiety [Unknown]
  - Life expectancy shortened [Unknown]
  - General physical health deterioration [Unknown]
  - Decreased interest [Unknown]
  - Temporomandibular joint syndrome [Unknown]
  - Malignant neoplasm progression [Recovering/Resolving]
  - Metastases to bone [Unknown]
  - Osteolysis [Unknown]
  - Breast cancer metastatic [Unknown]
  - Deep vein thrombosis [Recovered/Resolved]
  - Tooth fracture [Unknown]
  - Acute respiratory failure [Unknown]
  - Lung infiltration [Unknown]
  - Pneumonia bacterial [Unknown]
  - Sepsis [Unknown]
  - Angina pectoris [Unknown]
  - Confusional state [Unknown]
  - Pain in extremity [Unknown]
  - Headache [Recovering/Resolving]
  - Palmar-plantar erythrodysaesthesia syndrome [Unknown]
  - Anaemia [Unknown]
  - Periarthritis [Unknown]
  - Oral pain [Unknown]
  - Mastication disorder [Unknown]
  - Tooth impacted [Unknown]
  - Mental status changes [Unknown]
  - Fungal infection [Unknown]
  - Oedema [Unknown]
  - Jaundice [Unknown]
  - Hypercalcaemia [Unknown]
  - Hypernatraemia [Unknown]
  - Fluid overload [Unknown]
  - Acute respiratory distress syndrome [Unknown]
  - Mouth haemorrhage [Unknown]
  - Gastrointestinal sounds abnormal [Unknown]
  - Azotaemia [Unknown]
  - Metabolic alkalosis [Unknown]
  - Diarrhoea [Unknown]
  - Occult blood positive [Unknown]
  - Bradycardia [Unknown]
  - Candida infection [Unknown]
  - Cerebral ischaemia [Unknown]
  - Cerebral haemorrhage [Unknown]
  - Dyspnoea [Unknown]
  - Lethargy [Unknown]
  - Breath sounds abnormal [Unknown]
  - Rales [Unknown]
  - Pancytopenia [Unknown]
  - Ileus [Unknown]
  - Ascites [Unknown]
  - Hypovolaemia [Unknown]
  - Leukopenia [Unknown]
  - Cough [Unknown]
  - Pleural effusion [Unknown]
  - Tachycardia [Unknown]
  - Atelectasis [Unknown]
  - Decreased appetite [Unknown]
  - Venous stenosis [Unknown]
  - Nausea [Unknown]
  - Vomiting [Unknown]
  - Muscular weakness [Unknown]
  - Encephalopathy [Unknown]
  - Musculoskeletal disorder [Unknown]
  - Petechiae [Unknown]
  - Red blood cell schistocytes present [Unknown]
  - Fall [Unknown]
  - Head injury [Unknown]
  - Gastrooesophageal reflux disease [Unknown]
  - Ovarian cyst [Unknown]
  - Renal failure acute [Unknown]
  - Fatigue [Unknown]
  - Epistaxis [Unknown]
  - Photopsia [Unknown]
  - Convulsion [Unknown]
  - Mediastinal disorder [Unknown]
  - Arthropathy [Unknown]
  - Contusion [Unknown]
  - Metastases to skin [Unknown]
  - Hypertension [Unknown]
  - Bone lesion [Unknown]
  - Hypokalaemia [Unknown]
  - Hypothyroidism [Unknown]
  - Malnutrition [Unknown]
  - Thrombotic microangiopathy [Unknown]
  - Bronchitis [Unknown]
  - Hyperlipidaemia [Unknown]
  - Sacroiliitis [Unknown]
  - Dysaesthesia [Unknown]
  - Mass [Unknown]
  - Sinus congestion [Unknown]
  - Osteoporosis [Unknown]
  - Cervical spinal stenosis [Unknown]
  - Oral herpes [Unknown]
  - Transient ischaemic attack [Unknown]
  - Cardiomegaly [Unknown]
  - Vision blurred [Unknown]
